FAERS Safety Report 12196921 (Version 1)
Quarter: 2016Q1

REPORT INFORMATION
  Report Type: Spontaneous
  Country: US (occurrence: US)
  Receive Date: 20160321
  Receipt Date: 20160321
  Transmission Date: 20160526
  Serious: No
  Sender: FDA-Public Use
  Company Number: US-WARNER CHILCOTT, LLC-1049399

PATIENT
  Sex: Female

DRUGS (3)
  1. ESTRACE [Suspect]
     Active Substance: ESTRADIOL
     Indication: MENOPAUSE
     Route: 067
  2. LEVOTHYROXINE. [Concomitant]
     Active Substance: LEVOTHYROXINE
     Dates: start: 1985
  3. ESTRACE [Suspect]
     Active Substance: ESTRADIOL
     Indication: VAGINAL DISORDER
     Route: 067

REACTIONS (1)
  - Pruritus [Not Recovered/Not Resolved]
